FAERS Safety Report 24468153 (Version 2)
Quarter: 2025Q1

REPORT INFORMATION
  Report Type: Spontaneous
  Country: US (occurrence: US)
  Receive Date: 20241018
  Receipt Date: 20250106
  Transmission Date: 20250409
  Serious: Yes (Other)
  Sender: PFIZER
  Company Number: US-PFIZER INC-202400278537

PATIENT
  Age: 73 Year
  Sex: Female

DRUGS (2)
  1. IBRANCE [Suspect]
     Active Substance: PALBOCICLIB
     Route: 048
  2. IBRANCE [Suspect]
     Active Substance: PALBOCICLIB

REACTIONS (9)
  - Nephrostomy [Unknown]
  - Fatigue [Unknown]
  - Lip dry [Unknown]
  - Lip exfoliation [Unknown]
  - Lip haemorrhage [Unknown]
  - Epistaxis [Unknown]
  - Diarrhoea [Unknown]
  - Constipation [Unknown]
  - Mucous stools [Unknown]
